FAERS Safety Report 10709647 (Version 1)
Quarter: 2015Q1

REPORT INFORMATION
  Report Type: Spontaneous
  Country: US (occurrence: None)
  Receive Date: 20150113
  Receipt Date: 20150113
  Transmission Date: 20150721
  Serious: Yes (Disabling)
  Sender: FDA-Public Use
  Company Number: None

PATIENT
  Age: 51 Year
  Sex: Female
  Weight: 61.24 kg

DRUGS (1)
  1. BOTOX [Suspect]
     Active Substance: ONABOTULINUMTOXINA
     Indication: MIGRAINE
     Dosage: 33 INJECTIONS ALL OVER MY HEAD
     Dates: start: 20141217, end: 20141217

REACTIONS (6)
  - Tongue disorder [None]
  - Speech disorder [None]
  - Musculoskeletal discomfort [None]
  - Musculoskeletal stiffness [None]
  - Muscular weakness [None]
  - Crying [None]

NARRATIVE: CASE EVENT DATE: 20141217
